FAERS Safety Report 9363451 (Version 1)
Quarter: 2013Q2

REPORT INFORMATION
  Report Type: Spontaneous
  Country: US (occurrence: US)
  Receive Date: 20130624
  Receipt Date: 20130624
  Transmission Date: 20140414
  Serious: No
  Sender: FDA-Public Use
  Company Number: US-PFIZER INC-2013187248

PATIENT
  Age: 62 Year
  Sex: Female
  Weight: 79.37 kg

DRUGS (7)
  1. CELEBREX [Suspect]
     Indication: ARTHRALGIA
     Dosage: 200 MG, 2X/DAY
     Dates: start: 201208
  2. TRAMADOL HCL [Suspect]
     Indication: ARTHRALGIA
     Dosage: UNK, 3X/DAY
  3. CYMBALTA [Suspect]
     Indication: ARTHRALGIA
     Dosage: AN UNKNOWN DOSE DAILY
  4. CYMBALTA [Suspect]
     Indication: DEPRESSION
  5. LORTAB [Suspect]
     Indication: ARTHRALGIA
     Dosage: UNK, 2X/DAY
  6. VENTOLIN [Concomitant]
     Indication: CHRONIC OBSTRUCTIVE PULMONARY DISEASE
     Dosage: UNK, AS NEEDED
  7. ATROVENT [Concomitant]
     Indication: CHRONIC OBSTRUCTIVE PULMONARY DISEASE
     Dosage: UNK, AS NEEDED

REACTIONS (1)
  - Pain [Not Recovered/Not Resolved]
